FAERS Safety Report 20813404 (Version 3)
Quarter: 2022Q2

REPORT INFORMATION
  Report Type: Report from Study
  Country: TR (occurrence: None)
  Receive Date: 20220511
  Receipt Date: 20220602
  Transmission Date: 20220721
  Serious: Yes (Hospitalization, Other)
  Sender: FDA-Public Use
  Company Number: TR-ROCHE-2870329

PATIENT
  Age: 55 Year
  Sex: Female
  Weight: 77 kg

DRUGS (36)
  1. PLACEBO [Suspect]
     Active Substance: UNSPECIFIED INGREDIENT
     Indication: Bile duct cancer
     Dosage: DATE OF MOST RECENT DOSE OF BEVACIZUMAB PRIOR TO SAE:18/JUN/2021, 06/OCT/2021, 15/SEP/2021 AND 26/AP
     Route: 042
     Dates: start: 20210618
  2. ATEZOLIZUMAB [Suspect]
     Active Substance: ATEZOLIZUMAB
     Indication: Bile duct cancer
     Dosage: DATE OF MOST RECENT DOSE (1200 MG) OF ATEZOLIZUMAB PRIOR TO SERIOUS ADVERSE EVENT (SAE): 18/JUN/2021
     Route: 041
     Dates: start: 20210618
  3. CISPLATIN [Suspect]
     Active Substance: CISPLATIN
     Indication: Bile duct cancer
     Dosage: DATE OF MOST RECENT DOSE (50 MG) OF CISPLATIN PRIOR TO AE + SAE: 25/JUN/2021, 13/OCT/2021AND 15/SEP/
     Route: 042
     Dates: start: 20210618
  4. GEMCITABINE [Suspect]
     Active Substance: GEMCITABINE
     Indication: Bile duct cancer
     Dosage: DATE OF MOST RECENT DOSE (2000 MG) OF GEMCITABINE PRIOR TO AE + SAE: 25/JUN/2021, 13/OCT/2021AND 15/
     Route: 042
     Dates: start: 20210618
  5. EMEND [Concomitant]
     Active Substance: APREPITANT
     Indication: Nausea
     Dates: start: 20210618, end: 20211013
  6. DEKSAMETAZON [Concomitant]
     Indication: Nausea
     Dates: start: 20210618, end: 20211013
  7. PALONOSETRON [Concomitant]
     Active Substance: PALONOSETRON
     Indication: Nausea
     Dates: start: 20210618, end: 20211013
  8. FENIRAMIN [Concomitant]
     Indication: Nausea
     Dates: start: 20210618, end: 20211013
  9. BENZYDAMINE HYDROCHLORIDE [Concomitant]
     Active Substance: BENZYDAMINE HYDROCHLORIDE
     Route: 048
     Dates: start: 20210618, end: 20210625
  10. ONDANSETRON [Concomitant]
     Active Substance: ONDANSETRON
     Indication: Nausea
     Dates: start: 20210618, end: 20210627
  11. ONDANSETRON [Concomitant]
     Active Substance: ONDANSETRON
     Route: 042
     Dates: start: 20210713, end: 20210716
  12. TAZERACIN [Concomitant]
     Indication: Infection
     Route: 042
     Dates: start: 20210709, end: 20210716
  13. TAZERACIN [Concomitant]
     Route: 042
     Dates: start: 20211027, end: 20211104
  14. ACETAMINOPHEN [Concomitant]
     Active Substance: ACETAMINOPHEN
     Route: 048
     Dates: start: 20210709, end: 20210709
  15. ACETAMINOPHEN [Concomitant]
     Active Substance: ACETAMINOPHEN
     Route: 042
     Dates: start: 20210710, end: 20210716
  16. SODIUM PHOSPHATE [Concomitant]
     Active Substance: SODIUM PHOSPHATE
     Route: 054
     Dates: start: 20210710, end: 20210710
  17. METRONIDAZOLE [Concomitant]
     Active Substance: METRONIDAZOLE
     Indication: Infection
     Route: 042
     Dates: start: 20210710, end: 20210716
  18. PANTOPRAZOLE [Concomitant]
     Active Substance: PANTOPRAZOLE
     Route: 042
     Dates: start: 20210712, end: 20210716
  19. POTASSIUM CHLORIDE [Concomitant]
     Active Substance: POTASSIUM CHLORIDE
     Route: 042
     Dates: start: 20210712, end: 20210713
  20. POTASSIUM CHLORIDE [Concomitant]
     Active Substance: POTASSIUM CHLORIDE
     Dates: start: 20210625, end: 20210811
  21. MAGNESIUM SULFATE [Concomitant]
     Active Substance: MAGNESIUM SULFATE
     Route: 042
     Dates: start: 20211027, end: 20211027
  22. MAGNESIUM SULFATE [Concomitant]
     Active Substance: MAGNESIUM SULFATE
     Dates: start: 20210625, end: 20210811
  23. PAROL [Concomitant]
     Active Substance: ACETAMINOPHEN
     Route: 048
     Dates: start: 20211027, end: 20211027
  24. NEUPOGEN [Concomitant]
     Active Substance: FILGRASTIM
     Route: 042
     Dates: start: 20211028, end: 20211030
  25. ONDANSETRON HYDROCHLORIDE [Concomitant]
     Active Substance: ONDANSETRON HYDROCHLORIDE
     Route: 048
     Dates: start: 20211101, end: 20211101
  26. MAGVITAL [Concomitant]
     Route: 048
     Dates: start: 20211102, end: 20211102
  27. ZYGOSIS [Concomitant]
     Route: 042
     Dates: start: 20211101, end: 20211101
  28. POTASSIUM [Concomitant]
     Active Substance: POTASSIUM
     Route: 042
     Dates: start: 20211101, end: 20211101
  29. DEXRAZOXANE [Concomitant]
     Active Substance: DEXRAZOXANE
     Route: 042
     Dates: start: 20211101, end: 20211101
  30. CIPROFLOXACIN HYDROCHLORIDE [Concomitant]
     Active Substance: CIPROFLOXACIN HYDROCHLORIDE
     Indication: Urinary tract infection
     Route: 048
     Dates: start: 20210922, end: 20210928
  31. ZOLEDRONIC ACID [Concomitant]
     Active Substance: ZOLEDRONIC ACID
     Indication: Hypercalcaemia
     Route: 042
     Dates: start: 20220201
  32. PANTOPRAZOLE [Concomitant]
     Active Substance: PANTOPRAZOLE
     Indication: Prophylaxis
     Route: 042
     Dates: start: 20210712, end: 20210716
  33. ONDANSETRON [Concomitant]
     Active Substance: ONDANSETRON
     Indication: Nausea
     Route: 042
     Dates: start: 20210713, end: 20210716
  34. LACTULOSE [Concomitant]
     Active Substance: LACTULOSE
     Indication: Constipation
     Route: 048
     Dates: start: 20220323
  35. POTASSIUM BICARBONATE;POTASSIUM CITRATE [Concomitant]
     Route: 048
     Dates: start: 20220426
  36. POTASSIUM BICARBONATE;POTASSIUM CITRATE [Concomitant]
     Route: 048
     Dates: start: 2020, end: 20200315

REACTIONS (5)
  - Anal abscess [Recovered/Resolved]
  - Anaemia [Recovering/Resolving]
  - Hypokalaemia [Recovered/Resolved]
  - Neutropenia [Recovered/Resolved]
  - Hypercalcaemia [Recovering/Resolving]

NARRATIVE: CASE EVENT DATE: 20210625
